FAERS Safety Report 6935240-0 (Version None)
Quarter: 2010Q3

REPORT INFORMATION
  Report Type: 
  Country: None (occurrence: None)
  Receive Date: 20100822
  Receipt Date: 20100607
  Transmission Date: 20110219
  Serious: No
  Sender: FDA-Public Use
  Company Number: US-ALLERGAN-1007394US

PATIENT
  Age: 76 Year
  Sex: Female

DRUGS (3)
  1. COMBIGAN [Suspect]
     Indication: GLAUCOMA
     Dosage: UNK
  2. TENORMIN [Concomitant]
     Indication: HYPERTENSION
  3. TEKTURNA [Concomitant]
     Indication: HYPERTENSION

REACTIONS (1)
  - VITREOUS FLOATERS [None]
